FAERS Safety Report 5976410-8 (Version None)
Quarter: 2008Q4

REPORT INFORMATION
  Report Type: 
  Country: None (occurrence: None)
  Receive Date: 20081202
  Receipt Date: 20081120
  Transmission Date: 20090506
  Serious: Yes (Death)
  Sender: FDA-Public Use
  Company Number: MX-ELI_LILLY_AND_COMPANY-MX200810005755

PATIENT
  Age: 58 Year
  Sex: Male

DRUGS (2)
  1. ZYPREXA [Suspect]
     Indication: AGITATION
     Dosage: 10 MG, UNKNOWN
     Route: 030
     Dates: start: 20081001, end: 20081001
  2. HALDOL [Concomitant]
     Indication: AGITATION
     Dosage: 5 MG, EVERY 8 HRS
     Route: 065

REACTIONS (1)
  - AZOTAEMIA [None]
